FAERS Safety Report 8958421 (Version 1)
Quarter: 2012Q4

REPORT INFORMATION
  Report Type: Spontaneous
  Country: US (occurrence: None)
  Receive Date: 20121205
  Receipt Date: 20121205
  Transmission Date: 20130627
  Serious: Yes (Death)
  Sender: FDA-Public Use
  Company Number: None

PATIENT
  Sex: Female

DRUGS (1)
  1. OZURDEX 0.7MG (ALLERGAN) [Suspect]
     Indication: RENAL VEIN OCCLUSION
     Dates: start: 20111223, end: 20120413

REACTIONS (1)
  - Cardiac arrest [None]
